FAERS Safety Report 25654035 (Version 3)
Quarter: 2025Q3

REPORT INFORMATION
  Report Type: Spontaneous
  Country: EU (occurrence: EU)
  Receive Date: 20250807
  Receipt Date: 20250901
  Transmission Date: 20251021
  Serious: Yes (Other)
  Sender: SANDOZ
  Company Number: EU-PFIZER INC-202500144111

PATIENT
  Age: 66 Year
  Sex: Male
  Weight: 70 kg

DRUGS (8)
  1. ROSUVASTATIN CALCIUM [Suspect]
     Active Substance: ROSUVASTATIN CALCIUM
     Indication: Hyperlipidaemia
     Dosage: 10 MG, QD (10 MG, 1X/DAY)
     Route: 065
     Dates: end: 2025
  2. SOMATROPIN [Suspect]
     Active Substance: SOMATROPIN
     Dosage: 0.1 MG, QD  IN THE EVENING
     Route: 058
     Dates: start: 2023, end: 202506
  3. SOMATROPIN [Suspect]
     Active Substance: SOMATROPIN
     Indication: Hypopituitarism
     Dosage: 0.15 MG, QD  IN THE EVENING
     Route: 058
     Dates: start: 1980, end: 2023
  4. SOMATROPIN [Suspect]
     Active Substance: SOMATROPIN
     Dosage: 0.15 MG, QD  IN THE EVENING
     Route: 058
     Dates: start: 202506
  5. BISOPROLOL FUMARATE [Concomitant]
     Active Substance: BISOPROLOL FUMARATE
     Indication: Heart rate increased
     Dosage: 2.5 MG, QD ( 2X/DAY, MORNING AND EVENING)
     Route: 065
  6. ELIQUIS [Concomitant]
     Active Substance: APIXABAN
     Indication: Atrial fibrillation
     Dosage: 5 MG, QD (2.5 MG, 2X/DAY, MORNING AND EVENING)
     Route: 065
  7. HYDROCORTISONE [Concomitant]
     Active Substance: HYDROCORTISONE
     Indication: Glucocorticoid deficiency
     Dosage: 10 MG, QD (2X/DAY, MORNING AND AFTERNOON)
     Route: 065
  8. LEVOTHYROXINE SODIUM [Concomitant]
     Active Substance: LEVOTHYROXINE SODIUM
     Indication: Product used for unknown indication
     Dosage: 50 MG, QD (1X/DAY)
     Route: 065

REACTIONS (6)
  - Atrial fibrillation [Unknown]
  - Weight decreased [Recovered/Resolved]
  - Muscular weakness [Recovering/Resolving]
  - Fatigue [Recovering/Resolving]
  - Inflammation [Recovering/Resolving]
  - Intentional product misuse [Unknown]

NARRATIVE: CASE EVENT DATE: 20150101
